FAERS Safety Report 6030075-8 (Version None)
Quarter: 2009Q1

REPORT INFORMATION
  Report Type: 
  Country: None (occurrence: None)
  Receive Date: 20090106
  Receipt Date: 20090106
  Transmission Date: 20090719
  Serious: Yes (Hospitalization)
  Sender: FDA-Public Use
  Company Number: None

PATIENT
  Age: 24 Year
  Sex: Male
  Weight: 63.5036 kg

DRUGS (1)
  1. ZOLPIDEM TARTRATE [Suspect]
     Indication: INSOMNIA
     Dosage: 10 MG Q24H PO
     Route: 048
     Dates: start: 20081219, end: 20081229

REACTIONS (4)
  - BLADDER PAIN [None]
  - RENAL PAIN [None]
  - URINARY TRACT INFECTION [None]
  - VOMITING [None]
